FAERS Safety Report 15074637 (Version 1)
Quarter: 2018Q2

REPORT INFORMATION
  Report Type: Spontaneous
  Country: US (occurrence: US)
  Receive Date: 20180627
  Receipt Date: 20180627
  Transmission Date: 20180711
  Serious: Yes (Other)
  Sender: FDA-Public Use
  Company Number: US-SAOL THERAPEUTICS-2018SAO00770

PATIENT
  Age: 50 Year
  Sex: Female
  Weight: 92.97 kg

DRUGS (18)
  1. ATORVASTATIN [Concomitant]
     Active Substance: ATORVASTATIN
  2. COLACE [Concomitant]
     Active Substance: DOCUSATE SODIUM
  3. OMEPRAZOLE. [Concomitant]
     Active Substance: OMEPRAZOLE
  4. BUSPIRONE [Concomitant]
     Active Substance: BUSPIRONE HYDROCHLORIDE
  5. LISINOPRIL. [Concomitant]
     Active Substance: LISINOPRIL
  6. COMPOUNDED BACLOFEN [Suspect]
     Active Substance: BACLOFEN
     Indication: PAIN
  7. NEURONTIN [Concomitant]
     Active Substance: GABAPENTIN
  8. FLUOXETINE [Concomitant]
     Active Substance: FLUOXETINE HYDROCHLORIDE
  9. PERCOCET [Concomitant]
     Active Substance: ACETAMINOPHEN\OXYCODONE HYDROCHLORIDE
  10. ^THYROID^ MEDICATION [Concomitant]
  11. TIZANIDINE. [Concomitant]
     Active Substance: TIZANIDINE
  12. MOVANTIK [Concomitant]
     Active Substance: NALOXEGOL OXALATE
  13. ASA [Concomitant]
     Active Substance: ASPIRIN
  14. COMPOUNDED BACLOFEN [Suspect]
     Active Substance: BACLOFEN
     Indication: POST LAMINECTOMY SYNDROME
     Dosage: UNK
     Route: 037
  15. FENTANYL. [Suspect]
     Active Substance: FENTANYL
     Route: 037
  16. DILAUDID [Suspect]
     Active Substance: HYDROMORPHONE HYDROCHLORIDE
     Route: 037
  17. KLONOPIN [Concomitant]
     Active Substance: CLONAZEPAM
  18. SPIRONOLACTONE. [Concomitant]
     Active Substance: SPIRONOLACTONE

REACTIONS (3)
  - Off label use [Unknown]
  - Drug withdrawal syndrome [Unknown]
  - Device malfunction [Unknown]

NARRATIVE: CASE EVENT DATE: 20180109
